FAERS Safety Report 21140864 (Version 2)
Quarter: 2023Q1

REPORT INFORMATION
  Report Type: Spontaneous
  Country: US (occurrence: None)
  Receive Date: 20220728
  Receipt Date: 20230127
  Transmission Date: 20230417
  Serious: No
  Sender: FDA-Public Use
  Company Number: US-Ultragenyx Pharmaceutical Inc.-US-UGNX-22-00265

PATIENT
  Age: 69 Year
  Sex: Male

DRUGS (2)
  1. DOJOLVI [Suspect]
     Active Substance: TRIHEPTANOIN
     Indication: Very long-chain acyl-coenzyme A dehydrogenase deficiency
     Route: 048
     Dates: start: 200407
  2. DOJOLVI [Suspect]
     Active Substance: TRIHEPTANOIN
     Route: 048

REACTIONS (1)
  - Limb operation [Recovering/Resolving]

NARRATIVE: CASE EVENT DATE: 20220426
